FAERS Safety Report 13828965 (Version 2)
Quarter: 2017Q3

REPORT INFORMATION
  Report Type: Spontaneous
  Country: IN (occurrence: IN)
  Receive Date: 20170803
  Receipt Date: 20170908
  Transmission Date: 20171127
  Serious: No
  Sender: FDA-Public Use
  Company Number: IN-ROCHE-1973235

PATIENT
  Age: 44 Year
  Sex: Male

DRUGS (2)
  1. CAPECITABINE. [Suspect]
     Active Substance: CAPECITABINE
     Indication: COLORECTAL ADENOCARCINOMA
     Dosage: DIVIDED INTO TWO DOSES FROM DAY 1-14 OF THE CYCLE
     Route: 048
  2. OXALIPLATIN. [Concomitant]
     Active Substance: OXALIPLATIN
     Indication: RECTOSIGMOID CANCER
     Dosage: 130 MG/M2 ON DAY 1 OF THE CYCLE
     Route: 042

REACTIONS (1)
  - Hyperglycaemia [Unknown]
